FAERS Safety Report 21623160 (Version 1)
Quarter: 2022Q4

REPORT INFORMATION
  Report Type: Spontaneous
  Country: US (occurrence: US)
  Receive Date: 20221121
  Receipt Date: 20221121
  Transmission Date: 20230113
  Serious: Yes (Other)
  Sender: FDA-Public Use
  Company Number: US-SANOFI-01369879

PATIENT
  Age: 75 Year
  Sex: Male

DRUGS (1)
  1. DUPIXENT [Suspect]
     Active Substance: DUPILUMAB
     Indication: Neurodermatitis
     Dosage: 1X, LOADING DOSE
     Dates: start: 202209, end: 202209

REACTIONS (3)
  - Urinary bladder haemorrhage [Unknown]
  - Blood urine present [Unknown]
  - Paraesthesia [Unknown]
